FAERS Safety Report 24073389 (Version 2)
Quarter: 2024Q3

REPORT INFORMATION
  Report Type: Spontaneous
  Country: US (occurrence: US)
  Receive Date: 20240710
  Receipt Date: 20240830
  Transmission Date: 20241016
  Serious: Yes (Other)
  Sender: PFIZER
  Company Number: US-SEATTLE GENETICS-2024SGN01400

PATIENT
  Sex: Female

DRUGS (4)
  1. TUKYSA [Suspect]
     Active Substance: TUCATINIB
     Dosage: UNK, BID (TWICE A DAY)
  2. TRASTUZUMAB [Suspect]
     Active Substance: TRASTUZUMAB
     Dosage: UNK
     Route: 065
  3. CAPECITABINE [Suspect]
     Active Substance: CAPECITABINE
     Indication: Breast cancer metastatic
     Dosage: UNK
     Route: 065
  4. HERCEPTIN [Concomitant]
     Active Substance: TRASTUZUMAB
     Dosage: UNK

REACTIONS (1)
  - Thrombocytopenia [Unknown]
